FAERS Safety Report 9020439 (Version 1)
Quarter: 2013Q1

REPORT INFORMATION
  Report Type: Spontaneous
  Country: US (occurrence: US)
  Receive Date: 20130119
  Receipt Date: 20130119
  Transmission Date: 20140127
  Serious: No
  Sender: FDA-Public Use
  Company Number: US-ALLERGAN-1208439US

PATIENT
  Age: 86 Year
  Sex: Male

DRUGS (4)
  1. BOTOX? [Suspect]
     Indication: MUSCLE SPASTICITY
     Dosage: UNK UNITS
     Route: 030
     Dates: start: 20120501, end: 20120501
  2. BOTOX? [Suspect]
     Indication: MUSCULOSKELETAL STIFFNESS
  3. BOTOX? [Suspect]
     Indication: MUSCULAR WEAKNESS
  4. BOTOX? [Suspect]
     Indication: FINGER DEFORMITY

REACTIONS (3)
  - Injection site reaction [Not Recovered/Not Resolved]
  - Injected limb mobility decreased [Not Recovered/Not Resolved]
  - Drug ineffective [Unknown]
